FAERS Safety Report 6998531-3 (Version None)
Quarter: 2010Q3

REPORT INFORMATION
  Report Type: 
  Country: None (occurrence: None)
  Receive Date: 20100920
  Receipt Date: 20100217
  Transmission Date: 20110219
  Serious: Yes (Other)
  Sender: FDA-Public Use
  Company Number: US-ASTRAZENECA-2008UW27417

PATIENT
  Sex: Male
  Weight: 93 kg

DRUGS (8)
  1. SEROQUEL [Suspect]
     Indication: ANXIETY
     Dosage: 50-100MG
     Route: 048
     Dates: start: 20051017, end: 20081008
  2. SEROQUEL [Suspect]
     Route: 048
     Dates: start: 20080827
  3. CLORAZEPAN [Concomitant]
  4. LAMICTAL [Concomitant]
  5. CELEXA [Concomitant]
     Dosage: 20 MG 2 TABS DAILY
     Dates: start: 20080827
  6. ZESTRIL [Concomitant]
     Dates: start: 20080827
  7. LOPID [Concomitant]
     Dates: start: 20080827
  8. TENORMIN [Concomitant]
     Dates: start: 20080827

REACTIONS (1)
  - PANCREATITIS [None]
